FAERS Safety Report 6871185-2 (Version None)
Quarter: 2010Q3

REPORT INFORMATION
  Report Type: 
  Country: None (occurrence: None)
  Receive Date: 20100723
  Receipt Date: 20100713
  Transmission Date: 20110219
  Serious: Yes (Death)
  Sender: FDA-Public Use
  Company Number: EC-ROCHE-712505

PATIENT
  Age: 60 Year
  Sex: Female

DRUGS (2)
  1. AVASTIN [Suspect]
     Indication: BREAST CANCER
     Dosage: DOSE AND BATCH LOT NUMBER: UNKNOWN
     Route: 042
     Dates: start: 20091101, end: 20100501
  2. DOCETAXEL [Concomitant]
     Indication: BREAST CANCER
     Dosage: DOSE: UNKNOWN
     Route: 042
     Dates: start: 20091101, end: 20100501

REACTIONS (1)
  - DISEASE PROGRESSION [None]
